FAERS Safety Report 5212297-9 (Version None)
Quarter: 2007Q1

REPORT INFORMATION
  Report Type: 
  Country: None (occurrence: None)
  Receive Date: 20070118
  Receipt Date: 20070118
  Transmission Date: 20070707
  Serious: Yes (Hospitalization)
  Sender: FDA-Public Use
  Company Number: JP-ALLERGAN-0608028US

PATIENT
  Sex: Female

DRUGS (2)
  1. BOTOX [Suspect]
     Indication: TORTICOLLIS
     Dosage: 50 UNITS, SINGLE
     Route: 030
     Dates: start: 20041215, end: 20041215
  2. BOTOX [Suspect]
     Dosage: 80 UNITS, SINGLE
     Route: 030
     Dates: start: 20050119, end: 20050119

REACTIONS (3)
  - ASTHENIA [None]
  - ASTHMA [None]
  - SALIVARY HYPERSECRETION [None]
